FAERS Safety Report 7215188-7 (Version None)
Quarter: 2011Q1

REPORT INFORMATION
  Report Type: 
  Country: None (occurrence: None)
  Receive Date: 20110107
  Receipt Date: 20101014
  Transmission Date: 20110831
  Serious: No
  Sender: FDA-Public Use
  Company Number: A0886729A

PATIENT
  Sex: Female

DRUGS (2)
  1. LOVAZA [Suspect]
     Dosage: 4MG UNKNOWN
     Route: 048
     Dates: start: 20100101, end: 20100101
  2. UNKNOWN [Concomitant]

REACTIONS (1)
  - HYPERSENSITIVITY [None]
